FAERS Safety Report 10175442 (Version 1)
Quarter: 2014Q2

REPORT INFORMATION
  Report Type: Spontaneous
  Country: DE (occurrence: DE)
  Receive Date: 20140515
  Receipt Date: 20140515
  Transmission Date: 20141212
  Serious: Yes (Other)
  Sender: FDA-Public Use
  Company Number: DE-TEVA-480633GER

PATIENT
  Age: 54 Year
  Sex: Male

DRUGS (20)
  1. ALLOPURINOL [Suspect]
     Route: 065
  2. PROPRANOLOL [Suspect]
     Route: 065
  3. DIPYRONE [Suspect]
     Route: 065
  4. ABACAVIR [Concomitant]
     Route: 065
  5. LAMIVUDINE [Concomitant]
     Route: 065
  6. DARUNAVIR [Concomitant]
     Route: 065
  7. RITONAVIR [Concomitant]
     Route: 065
  8. MIRTAZAPINE [Concomitant]
     Route: 065
  9. OLANZAPINE [Concomitant]
     Route: 065
  10. CALCITRIOL [Concomitant]
     Route: 065
  11. LEVOTHYROXINE SODIUM [Concomitant]
     Route: 065
  12. BIPERIDEN [Concomitant]
     Route: 065
  13. METRONIDAZOLE [Concomitant]
     Route: 065
  14. VANCOMYCIN [Concomitant]
     Route: 065
  15. CIPROFLOXACIN [Concomitant]
     Route: 065
  16. MEROPENEM [Concomitant]
     Route: 065
  17. TIGECYCLINE [Concomitant]
     Route: 065
  18. CASPOFUNGIN [Concomitant]
     Route: 065
  19. ACICLOVIR [Concomitant]
     Route: 065
  20. FIDAXOMICIN [Concomitant]
     Route: 065

REACTIONS (2)
  - Agranulocytosis [Unknown]
  - Pneumonia aspiration [Unknown]
